FAERS Safety Report 8611727 (Version 3)
Quarter: 2015Q1

REPORT INFORMATION
  Report Type: Spontaneous
  Country: US (occurrence: US)
  Receive Date: 20120613
  Receipt Date: 20150114
  Transmission Date: 20150721
  Serious: Yes (Death, Hospitalization)
  Sender: FDA-Public Use
  Company Number: US-SANOFI-AVENTIS-2012SA041796

PATIENT
  Age: 80 Year
  Sex: Male

DRUGS (24)
  1. KLOR-CON [Concomitant]
     Active Substance: POTASSIUM CHLORIDE
     Dosage: QAM
     Route: 048
  2. ALBUTEROL. [Concomitant]
     Active Substance: ALBUTEROL
  3. PRILOSEC [Concomitant]
     Active Substance: OMEPRAZOLE MAGNESIUM
  4. LISINOPRIL. [Concomitant]
     Active Substance: LISINOPRIL
  5. CIPRO [Concomitant]
     Active Substance: CIPROFLOXACIN HYDROCHLORIDE
  6. MICRO-K [Concomitant]
     Active Substance: POTASSIUM CHLORIDE
  7. VANCOMYCIN [Concomitant]
     Active Substance: VANCOMYCIN
  8. ZOSYN [Concomitant]
     Active Substance: PIPERACILLIN SODIUM\TAZOBACTAM SODIUM
  9. NORVASC [Concomitant]
     Active Substance: AMLODIPINE BESYLATE
  10. MINERALS NOS/VITAMINS NOS/AMINO ACIDS NOS [Concomitant]
  11. ASPIRIN. [Concomitant]
     Active Substance: ASPIRIN
     Dates: start: 200901
  12. DUONEB [Concomitant]
     Active Substance: ALBUTEROL SULFATE\IPRATROPIUM BROMIDE
     Dosage: DOSE 2 PUFFS
  13. DIFLUCAN [Concomitant]
     Active Substance: FLUCONAZOLE
     Route: 048
  14. ACTOS [Concomitant]
     Active Substance: PIOGLITAZONE HYDROCHLORIDE
     Route: 048
  15. AMLODIPINE [Concomitant]
     Active Substance: AMLODIPINE BESYLATE
     Route: 048
  16. ASPIRIN. [Concomitant]
     Active Substance: ASPIRIN
     Dates: start: 200711
  17. UROXATRAL [Concomitant]
     Active Substance: ALFUZOSIN HYDROCHLORIDE
     Dosage: DOSE 10
  18. PLAVIX [Suspect]
     Active Substance: CLOPIDOGREL BISULFATE
     Indication: CEREBROVASCULAR ACCIDENT
     Route: 048
     Dates: start: 20070918, end: 20081202
  19. SAW PALMETTO [Concomitant]
     Active Substance: SAW PALMETTO
     Dosage: DOSE 2 (UNITS: NOT SPECIFIED)
  20. MACRODANTIN [Concomitant]
     Active Substance: NITROFURANTOIN
     Dosage: DOSE 100
  21. AVODART [Concomitant]
     Active Substance: DUTASTERIDE
     Route: 048
  22. ARICEPT [Concomitant]
     Active Substance: DONEPEZIL HYDROCHLORIDE
  23. MUCINEX [Concomitant]
     Active Substance: GUAIFENESIN
  24. ATROVENT [Concomitant]
     Active Substance: IPRATROPIUM BROMIDE
     Dosage: NEBULIZER

REACTIONS (4)
  - Gastrointestinal haemorrhage [Unknown]
  - Haemorrhage [Unknown]
  - Haematuria [Recovered/Resolved]
  - Death [Fatal]

NARRATIVE: CASE EVENT DATE: 20090422
